FAERS Safety Report 8405944-1 (Version None)
Quarter: 2012Q2

REPORT INFORMATION
  Report Type: 
  Country: None (occurrence: None)
  Receive Date: 20120604
  Receipt Date: 20120529
  Transmission Date: 20120825
  Serious: No
  Sender: FDA-Public Use
  Company Number: US-JNJFOC-20120520634

PATIENT
  Sex: Female
  Weight: 67.13 kg

DRUGS (8)
  1. LYRICA [Concomitant]
     Indication: EPILEPSY
     Route: 048
     Dates: start: 20100101
  2. CELEXA [Concomitant]
     Indication: ANXIETY
     Route: 048
  3. UNKNOWN MEDICATION [Concomitant]
     Indication: INFLAMMATION
     Route: 048
     Dates: start: 20110101
  4. LYRICA [Concomitant]
     Indication: FIBROMYALGIA
     Route: 048
     Dates: start: 20100101
  5. METFORMIN HCL [Concomitant]
     Indication: DIABETES MELLITUS
     Route: 048
     Dates: start: 20090101
  6. ATENOLOL [Concomitant]
     Indication: HYPERTENSION
     Route: 048
     Dates: start: 20090101
  7. DURAGESIC-100 [Suspect]
     Indication: FIBROMYALGIA
     Route: 062
     Dates: start: 20120101
  8. TOPAMAX [Concomitant]
     Indication: NEURALGIA
     Route: 048
     Dates: start: 20110101

REACTIONS (2)
  - PRODUCT QUALITY ISSUE [None]
  - WRONG TECHNIQUE IN DRUG USAGE PROCESS [None]
